FAERS Safety Report 16496148 (Version 2)
Quarter: 2019Q3

REPORT INFORMATION
  Report Type: Spontaneous
  Country: JP (occurrence: JP)
  Receive Date: 20190628
  Receipt Date: 20190704
  Transmission Date: 20191004
  Serious: Yes (Hospitalization)
  Sender: FDA-Public Use
  Company Number: JP-INCYTE CORPORATION-2019IN006314

PATIENT

DRUGS (3)
  1. JAKAVI [Suspect]
     Active Substance: RUXOLITINIB
     Dosage: 20 MG, UNK
     Route: 048
  2. RED BLOOD CELLS, CONCENTRATED [Concomitant]
     Active Substance: HUMAN RED BLOOD CELL
     Indication: PRIMARY MYELOFIBROSIS
     Dosage: APPROX. 2 UNITS/WEEK ON AVERAGE
     Route: 065
     Dates: start: 201705
  3. JAKAVI [Suspect]
     Active Substance: RUXOLITINIB
     Indication: PRIMARY MYELOFIBROSIS
     Dosage: 10 MG, UNK
     Route: 048
     Dates: start: 201705

REACTIONS (6)
  - Iron overload [Unknown]
  - Anaemia [Unknown]
  - Bone marrow failure [Unknown]
  - End stage renal disease [Unknown]
  - Renal impairment [Unknown]
  - Pain [Unknown]

NARRATIVE: CASE EVENT DATE: 201812
